FAERS Safety Report 13947421 (Version 2)
Quarter: 2017Q3

REPORT INFORMATION
  Report Type: Report from Study
  Country: CN (occurrence: CN)
  Receive Date: 20170908
  Receipt Date: 20170918
  Transmission Date: 20171128
  Serious: Yes (Other)
  Sender: FDA-Public Use
  Company Number: CN-ROCHE-1986167

PATIENT

DRUGS (4)
  1. BEVACIZUMAB. [Suspect]
     Active Substance: BEVACIZUMAB
     Indication: BILE DUCT CANCER
     Route: 065
  2. TEGAFUR [Suspect]
     Active Substance: TEGAFUR
     Indication: BILE DUCT CANCER
     Route: 065
  3. OXALIPLATIN. [Suspect]
     Active Substance: OXALIPLATIN
     Indication: BILE DUCT CANCER
     Route: 065
  4. TS-1 [Suspect]
     Active Substance: GIMERACIL\OTERACIL\TEGAFUR
     Indication: BILE DUCT CANCER
     Route: 065

REACTIONS (7)
  - Vomiting [Unknown]
  - Alanine aminotransferase abnormal [Unknown]
  - Aspartate aminotransferase abnormal [Unknown]
  - Leukopenia [Unknown]
  - Anaemia [Unknown]
  - Nausea [Unknown]
  - Stomatitis [Unknown]
